FAERS Safety Report 17048836 (Version 1)
Quarter: 2019Q4

REPORT INFORMATION
  Report Type: Spontaneous
  Country: US (occurrence: US)
  Receive Date: 20191118
  Receipt Date: 20191118
  Transmission Date: 20200122
  Serious: Yes (Death)
  Sender: FDA-Public Use
  Company Number: None

PATIENT
  Age: 83 Year
  Sex: Male
  Weight: 83.9 kg

DRUGS (2)
  1. ANDEXXA [Suspect]
     Active Substance: ANDEXANET ALFA
     Indication: SUBARACHNOID HAEMORRHAGE
     Dosage: ?          OTHER FREQUENCY:BOLUS THEN INFUSIO;?
     Route: 041
     Dates: start: 20191105, end: 20191105
  2. ANDEXXA [Suspect]
     Active Substance: ANDEXANET ALFA
     Indication: SUBDURAL HAEMATOMA
     Dosage: ?          OTHER FREQUENCY:BOLUS THEN INFUSIO;?
     Route: 041
     Dates: start: 20191105, end: 20191105

REACTIONS (4)
  - Cerebral infarction [None]
  - Hemiplegia [None]
  - Aphasia [None]
  - Acute myocardial infarction [None]

NARRATIVE: CASE EVENT DATE: 20191105
